FAERS Safety Report 8707313 (Version 2)
Quarter: 2012Q4

REPORT INFORMATION
  Report Type: 
  Country: BR (occurrence: BR)
  Receive Date: 20120803
  Receipt Date: 20121017
  Transmission Date: 20130627
  Serious: Yes (Hospitalization)
  Sender: FDA-Public Use
  Company Number: BR-ASTRAZENECA-2012SE53554

PATIENT
  Age: 79 Year
  Sex: Female
  Weight: 50 kg

DRUGS (2)
  1. CRESTOR [Suspect]
     Route: 048
  2. BRILINTA [Suspect]
     Indication: CEREBROVASCULAR ACCIDENT
     Route: 048
     Dates: start: 201206

REACTIONS (3)
  - Cerebrovascular accident [Recovering/Resolving]
  - Sensation of heaviness [Not Recovered/Not Resolved]
  - Off label use [Not Recovered/Not Resolved]
